FAERS Safety Report 9515435 (Version 1)
Quarter: 2013Q3

REPORT INFORMATION
  Report Type: Spontaneous
  Country: CA (occurrence: CA)
  Receive Date: 20130911
  Receipt Date: 20130911
  Transmission Date: 20140515
  Serious: Yes (Death, Hospitalization)
  Sender: FDA-Public Use
  Company Number: PHHY2013CA098339

PATIENT
  Age: 55 Year
  Sex: Male

DRUGS (5)
  1. AMANTADINE [Suspect]
     Dosage: 100 MG, TID
  2. AMANTADINE [Suspect]
     Dosage: 200 MG, 7QD
  3. ENTACAPONE [Suspect]
     Dosage: UNK UKN, UNK
  4. CARBIDOPA/LEVODOPA [Concomitant]
     Dosage: UNK UKN, UNK
  5. QUETIAPINE [Concomitant]
     Dosage: UNK UKN, UNK

REACTIONS (14)
  - Hypoxic-ischaemic encephalopathy [Fatal]
  - Cardio-respiratory arrest [Unknown]
  - Toxicity to various agents [Unknown]
  - Cardiotoxicity [Unknown]
  - Renal failure acute [Unknown]
  - Incorrect dose administered [Unknown]
  - Neuroleptic malignant syndrome [Unknown]
  - Tremor [Unknown]
  - Paranoia [Unknown]
  - Agitation [Unknown]
  - Hallucination [Unknown]
  - Rhabdomyolysis [Unknown]
  - Muscle rigidity [Unknown]
  - Loss of consciousness [Unknown]
